FAERS Safety Report 5103079-7 (Version None)
Quarter: 2006Q3

REPORT INFORMATION
  Report Type: 
  Country: None (occurrence: None)
  Receive Date: 20060907
  Receipt Date: 20060825
  Transmission Date: 20061208
  Serious: Yes (Hospitalization, Other)
  Sender: FDA-Public Use
  Company Number: 2006AP000647

PATIENT
  Sex: Male

DRUGS (1)
  1. MINOXIDIL [Suspect]
     Indication: ALOPECIA
     Dosage: SEE IMAGE
     Route: 061
     Dates: start: 20060101, end: 20060101

REACTIONS (8)
  - DIPLOPIA [None]
  - DIZZINESS [None]
  - EXTRAOCULAR MUSCLE PARESIS [None]
  - INFECTION [None]
  - PYREXIA [None]
  - SCAR [None]
  - SKIN LESION [None]
  - VISUAL DISTURBANCE [None]
